FAERS Safety Report 8608622-9 (Version None)
Quarter: 2012Q3

REPORT INFORMATION
  Report Type: 
  Country: None (occurrence: None)
  Receive Date: 20120806
  Receipt Date: 20120720
  Transmission Date: 20120928
  Serious: Yes (Other)
  Sender: FDA-Public Use
  Company Number: DSA_58647_2012

PATIENT

DRUGS (6)
  1. I.V SOLUTIONS [Concomitant]
  2. FLUOROURACIL [Suspect]
     Indication: NEOPLASM MALIGNANT
     Dosage: DF
  3. FLUDEOXYGLUCOSE (18F) [Concomitant]
  4. THERAPEUTIC RADIOPHARMACEUTICALS (THERAPEUTIC RADIOPHARMEUTICALS) [Suspect]
     Indication: OESOPHAGEAL CARCINOMA
     Dosage: 10 MV X-RAYS, 2 GY DAILY
  5. NEDAPLATIN (NEDAPLATIN) [Suspect]
     Indication: OESOPHAGEAL CARCINOMA
     Dosage: DF
  6. CISPLATIN [Suspect]
     Indication: OESOPHAGEAL CARCINOMA
     Dosage: DF

REACTIONS (1)
  - THROMBOCYTOPENIA [None]
